FAERS Safety Report 17412120 (Version 1)
Quarter: 2020Q1

REPORT INFORMATION
  Report Type: Spontaneous
  Country: CA (occurrence: CA)
  Receive Date: 20200213
  Receipt Date: 20200213
  Transmission Date: 20200409
  Serious: Yes (Hospitalization)
  Sender: FDA-Public Use
  Company Number: CA-TEVA-2020-CA-1183578

PATIENT
  Age: 64 Year
  Sex: Male

DRUGS (3)
  1. SANDOSTATIN [Suspect]
     Active Substance: OCTREOTIDE ACETATE
     Indication: SHORT-BOWEL SYNDROME
     Dosage: 1.3333 MILLIGRAM DAILY;
     Route: 030
  2. CODEINE [Suspect]
     Active Substance: CODEINE
     Indication: PRODUCT USED FOR UNKNOWN INDICATION
     Route: 065
  3. MORPHINE [Suspect]
     Active Substance: MORPHINE
     Indication: PRODUCT USED FOR UNKNOWN INDICATION
     Route: 065

REACTIONS (18)
  - Catheter site infection [Unknown]
  - Drug hypersensitivity [Unknown]
  - Gastrointestinal disorder [Unknown]
  - Vomiting [Unknown]
  - Kidney infection [Unknown]
  - Bacterial test positive [Unknown]
  - Blood pressure increased [Unknown]
  - Electrolyte imbalance [Unknown]
  - Product use in unapproved indication [Unknown]
  - Cortisol decreased [Unknown]
  - Dehydration [Unknown]
  - Gastrointestinal bacterial infection [Unknown]
  - Malaise [Unknown]
  - Respiratory disorder [Unknown]
  - Gastrooesophageal reflux disease [Unknown]
  - Intestinal obstruction [Unknown]
  - Infection [Unknown]
  - Pneumonia [Unknown]
